FAERS Safety Report 6130271-5 (Version None)
Quarter: 2009Q1

REPORT INFORMATION
  Report Type: 
  Country: None (occurrence: None)
  Receive Date: 20090324
  Receipt Date: 20090317
  Transmission Date: 20090719
  Serious: Yes (Hospitalization, Other)
  Sender: FDA-Public Use
  Company Number: PHHY2009MX08847

PATIENT
  Sex: Male

DRUGS (1)
  1. EXFORGE [Suspect]
     Indication: HYPERTENSION
     Dosage: 1 DF (160/5 MG)/DAY
     Route: 048
     Dates: start: 20070301, end: 20090302

REACTIONS (3)
  - ARTERIOSCLEROSIS [None]
  - HYPERTENSION [None]
  - SURGERY [None]
